FAERS Safety Report 9325198 (Version 4)
Quarter: 2013Q3

REPORT INFORMATION
  Report Type: Report from Study
  Country: DE (occurrence: DE)
  Receive Date: 20130604
  Receipt Date: 20130731
  Transmission Date: 20140515
  Serious: Yes (Hospitalization)
  Sender: FDA-Public Use
  Company Number: DE-ROCHE-1231686

PATIENT
  Age: 79 Year
  Sex: Female
  Weight: 60 kg

DRUGS (9)
  1. BEVACIZUMAB [Suspect]
     Indication: OVARIAN CANCER
     Dosage: DATE OF LAST DOSE PRIOR TO SAE: 15/MAY/2013.
     Route: 042
     Dates: start: 20130515
  2. BEVACIZUMAB [Suspect]
     Dosage: DATE OF LAST DOSE PRIOR TO SAE: 17/JUL/2013.
     Route: 042
     Dates: start: 20130515
  3. CARBOPLATIN [Suspect]
     Indication: OVARIAN CANCER
     Dosage: DATE OF LAST DOSE PRIOR TO SAE: 15/MAY/2013.
     Route: 042
     Dates: start: 20130424
  4. CARBOPLATIN [Suspect]
     Dosage: DATE OF LAST DOSE PRIOR TO SAE: 17/JUL/2013.
     Route: 042
     Dates: start: 20130424
  5. PACLITAXEL [Suspect]
     Indication: OVARIAN CANCER
     Dosage: DATE OF LAST DOSE PRIOR TO SAE: 15/MAY/2013.
     Route: 042
     Dates: start: 20130424
  6. PACLITAXEL [Suspect]
     Dosage: DATE OF LAST DOSE PRIOR TO SAE: 17/JUL/2013.
     Route: 042
     Dates: start: 20130424
  7. CLEXANE [Concomitant]
     Route: 065
     Dates: start: 2006
  8. PRAVASTATIN [Concomitant]
     Route: 065
     Dates: start: 2007
  9. ENOXAPARIN [Concomitant]
     Indication: ATRIAL FIBRILLATION
     Dosage: DATE OF LAST DOSE PRIOR TO SAE: 23/JUL/2013.
     Route: 058
     Dates: start: 20130201

REACTIONS (1)
  - General physical health deterioration [Recovered/Resolved]
